FAERS Safety Report 9297671 (Version 14)
Quarter: 2014Q2

REPORT INFORMATION
  Report Type: Spontaneous
  Country: GB (occurrence: GB)
  Receive Date: 20130520
  Receipt Date: 20140521
  Transmission Date: 20141212
  Serious: Yes (Other)
  Sender: FDA-Public Use
  Company Number: PHFR2013GB002861

PATIENT
  Age: 67 Year
  Sex: Female

DRUGS (3)
  1. CLOZARIL [Suspect]
     Indication: SCHIZOPHRENIA
     Dosage: UNK
     Route: 048
     Dates: start: 20051129
  2. CLOZARIL [Suspect]
     Dosage: 400 MG
     Route: 048
  3. CLOZARIL [Suspect]
     Dosage: UNK
     Dates: start: 20131128

REACTIONS (7)
  - Breast cancer [Not Recovered/Not Resolved]
  - White blood cell count increased [Recovered/Resolved]
  - Neutrophil count increased [Recovered/Resolved]
  - White blood cell count decreased [Recovered/Resolved]
  - Neutrophil count decreased [Recovered/Resolved]
  - Mental impairment [Not Recovered/Not Resolved]
  - Platelet count decreased [Recovered/Resolved]
